FAERS Safety Report 6516912-9 (Version None)
Quarter: 2009Q4

REPORT INFORMATION
  Report Type: 
  Country: None (occurrence: None)
  Receive Date: 20091223
  Receipt Date: 20090701
  Transmission Date: 20100525
  Serious: Yes (Other)
  Sender: FDA-Public Use
  Company Number: FR-ASTRAZENECA-2009SE32954

PATIENT
  Age: 57 Year
  Sex: Female

DRUGS (5)
  1. CANDESARTAN CILEXETIL/HYDROCHLOROTHIAZIDE (ATACAND HCT) [Suspect]
     Dosage: 16+12.5 MG  1.5 TABLETS/DAY
     Route: 048
     Dates: start: 20090101, end: 20090101
  2. TENORDATE [Concomitant]
     Indication: HYPERTENSION
  3. EUPRESSYL [Concomitant]
  4. TEMESTA [Concomitant]
  5. EFFERALGAN CODEINE [Concomitant]

REACTIONS (1)
  - ACUTE MYELOID LEUKAEMIA [None]
